FAERS Safety Report 6197277-1 (Version None)
Quarter: 2009Q2

REPORT INFORMATION
  Report Type: 
  Country: None (occurrence: None)
  Receive Date: 20090521
  Receipt Date: 20090508
  Transmission Date: 20091009
  Serious: Yes (Other)
  Sender: FDA-Public Use
  Company Number: ES-JNJFOC-20090501915

PATIENT
  Age: 34 Year
  Sex: Male

DRUGS (3)
  1. HALOPERIDOL [Suspect]
     Route: 065
  2. HALOPERIDOL [Suspect]
     Indication: DRUG USE FOR UNKNOWN INDICATION
     Route: 065
  3. LORMETAZEPAM [Suspect]
     Indication: DRUG USE FOR UNKNOWN INDICATION
     Route: 065

REACTIONS (4)
  - AGITATION [None]
  - GAIT DISTURBANCE [None]
  - HALLUCINATION [None]
  - MENTAL IMPAIRMENT [None]
